FAERS Safety Report 19440653 (Version 1)
Quarter: 2021Q2

REPORT INFORMATION
  Report Type: Spontaneous
  Country: US (occurrence: US)
  Receive Date: 20210621
  Receipt Date: 20210621
  Transmission Date: 20210717
  Serious: No
  Sender: FDA-Public Use
  Company Number: US-CYCLE PHARMACEUTICALS LTD-2021-CYC-000021

PATIENT

DRUGS (1)
  1. NITYR [Suspect]
     Active Substance: NITISINONE
     Dosage: 2 MG, QD
     Route: 048

REACTIONS (2)
  - Nerve compression [Unknown]
  - Hypoaesthesia [Unknown]
